FAERS Safety Report 4788205-1 (Version None)
Quarter: 2005Q3

REPORT INFORMATION
  Report Type: 
  Country: None (occurrence: None)
  Receive Date: 20050920
  Receipt Date: 20050606
  Transmission Date: 20060218
  Serious: Yes (Other)
  Sender: FDA-Public Use
  Company Number: PHEH2005US06415

PATIENT
  Age: 51 Year
  Sex: Female

DRUGS (2)
  1. DIOVAN [Suspect]
     Indication: HYPERTENSION
     Dosage: QD,ORAL
     Route: 048
     Dates: start: 20050101
  2. VERAPAMIL [Concomitant]

REACTIONS (1)
  - BLOOD PRESSURE INCREASED [None]
